FAERS Safety Report 16577388 (Version 4)
Quarter: 2019Q3

REPORT INFORMATION
  Report Type: Spontaneous
  Country: US (occurrence: US)
  Receive Date: 20190716
  Receipt Date: 20190919
  Transmission Date: 20191004
  Serious: Yes (Hospitalization, Other)
  Sender: FDA-Public Use
  Company Number: US-PFIZER INC-2018346974

PATIENT
  Age: 30 Year
  Sex: Female
  Weight: 54 kg

DRUGS (2)
  1. LYRICA [Suspect]
     Active Substance: PREGABALIN
     Dosage: 200 MG, 2X/DAY
  2. LYRICA [Suspect]
     Active Substance: PREGABALIN
     Indication: MULTIPLE SCLEROSIS
     Dosage: 300 MG, 3X/DAY (1 CAPSULE 3 TIMES A DAY)
     Route: 048

REACTIONS (15)
  - Drug withdrawal syndrome [Not Recovered/Not Resolved]
  - Overdose [Unknown]
  - Thinking abnormal [Unknown]
  - Paraesthesia [Unknown]
  - Product use in unapproved indication [Unknown]
  - Cold sweat [Unknown]
  - Crying [Unknown]
  - Off label use [Unknown]
  - Mental disorder [Unknown]
  - Social problem [Unknown]
  - Speech disorder [Unknown]
  - Hearing disability [Unknown]
  - Suicidal ideation [Unknown]
  - Drug dependence [Unknown]
  - Depression [Unknown]

NARRATIVE: CASE EVENT DATE: 201907
